FAERS Safety Report 6178656-5 (Version None)
Quarter: 2009Q2

REPORT INFORMATION
  Report Type: 
  Country: None (occurrence: None)
  Receive Date: 20090430
  Receipt Date: 20090424
  Transmission Date: 20091009
  Serious: Yes (Death, Other)
  Sender: FDA-Public Use
  Company Number: 2009US001283

PATIENT
  Age: 59 Year
  Sex: Male

DRUGS (1)
  1. PROGRAF [Suspect]
     Indication: LIVER TRANSPLANT

REACTIONS (11)
  - ASCITES [None]
  - CLOSTRIDIUM DIFFICILE COLITIS [None]
  - CYTOMEGALOVIRUS INFECTION [None]
  - ILEUS [None]
  - MALNUTRITION [None]
  - MULTI-ORGAN FAILURE [None]
  - PANCYTOPENIA [None]
  - PERITONITIS SCLEROSING [None]
  - SEPSIS [None]
  - SMALL INTESTINAL OBSTRUCTION [None]
  - WEIGHT GAIN POOR [None]
